FAERS Safety Report 12295015 (Version 2)
Quarter: 2016Q2

REPORT INFORMATION
  Report Type: Spontaneous
  Country: US (occurrence: US)
  Receive Date: 20160422
  Receipt Date: 20160516
  Transmission Date: 20160815
  Serious: No
  Sender: FDA-Public Use
  Company Number: US-GLAXOSMITHKLINE-US2016049619

PATIENT
  Sex: Female

DRUGS (2)
  1. ALLI [Suspect]
     Active Substance: ORLISTAT
     Indication: PRODUCT USED FOR UNKNOWN INDICATION
     Dosage: UNK
     Dates: start: 200801, end: 2010
  2. ALLI [Suspect]
     Active Substance: ORLISTAT
     Dosage: UNK
     Dates: start: 201603

REACTIONS (6)
  - Steatorrhoea [Recovered/Resolved with Sequelae]
  - Drug ineffective [Unknown]
  - Product quality issue [Unknown]
  - Treatment noncompliance [Unknown]
  - Extra dose administered [Unknown]
  - Flatulence [Recovered/Resolved with Sequelae]
